FAERS Safety Report 9345406 (Version 1)
Quarter: 2013Q2

REPORT INFORMATION
  Report Type: Spontaneous
  Country: GB (occurrence: GB)
  Receive Date: 20130613
  Receipt Date: 20130613
  Transmission Date: 20140414
  Serious: Yes (Other)
  Sender: FDA-Public Use
  Company Number: GB-AMGEN-GBRSP2013040936

PATIENT
  Age: 4 Year
  Sex: Male
  Weight: 16 kg

DRUGS (5)
  1. ENBREL [Suspect]
     Indication: JUVENILE IDIOPATHIC ARTHRITIS
     Dosage: 7 MG, 2X/WEEK
     Route: 058
     Dates: start: 201303, end: 201305
  2. METHOTREXATE [Concomitant]
     Dosage: 10 MG, WEEKLY
     Route: 048
  3. IBUPROFEN [Concomitant]
     Dosage: AS NEEDED
  4. PARACETAMOL [Concomitant]
     Dosage: AS NEEDED
  5. FOLIC ACID [Concomitant]
     Dosage: 5 MG, WEEKLY

REACTIONS (3)
  - Choroiditis [Recovering/Resolving]
  - Optic disc disorder [Unknown]
  - Visual acuity reduced [Unknown]
